FAERS Safety Report 17160510 (Version 4)
Quarter: 2020Q1

REPORT INFORMATION
  Report Type: Report from Study
  Country: US (occurrence: US)
  Receive Date: 20191216
  Receipt Date: 20200318
  Transmission Date: 20200409
  Serious: Yes (Death, Hospitalization, Other)
  Sender: FDA-Public Use
  Company Number: US-SHIRE-US201942843

PATIENT
  Age: 74 Year
  Sex: Female
  Weight: 71.2 kg

DRUGS (2)
  1. TEDUGLUTIDE [Suspect]
     Active Substance: TEDUGLUTIDE
     Indication: SHORT-BOWEL SYNDROME
     Dosage: UNK UNK, 1X/DAY:QD
     Route: 058
     Dates: start: 20191111, end: 20200215
  2. TEDUGLUTIDE [Suspect]
     Active Substance: TEDUGLUTIDE
     Dosage: 1.5 MILLIGRAM, 1X/DAY:QD
     Route: 050

REACTIONS (4)
  - Death [Fatal]
  - Renal failure [Fatal]
  - Hypotension [Fatal]
  - Infection [Fatal]

NARRATIVE: CASE EVENT DATE: 20191203
